FAERS Safety Report 7418614-3 (Version None)
Quarter: 2011Q2

REPORT INFORMATION
  Report Type: 
  Country: None (occurrence: None)
  Receive Date: 20110415
  Receipt Date: 20101027
  Transmission Date: 20111010
  Serious: Yes (Hospitalization, Other)
  Sender: FDA-Public Use
  Company Number: US-BAYER-201013955NA

PATIENT
  Age: 29 Year
  Sex: Female
  Weight: 83.182 kg

DRUGS (13)
  1. CARAFATE [Concomitant]
  2. PLAQUENIL [Concomitant]
     Indication: SYSTEMIC LUPUS ERYTHEMATOSUS
     Dates: start: 20020101, end: 20100101
  3. ALEVE [Concomitant]
     Dates: start: 20020101, end: 20100101
  4. YASMIN [Suspect]
     Indication: CYST
     Dosage: UNK
     Route: 048
     Dates: start: 20060101, end: 20080101
  5. ANTIBIOTICS [Concomitant]
     Dates: start: 20020101, end: 20100101
  6. GABAPENTIN [Concomitant]
  7. PROMETHAZINE HYDROCHLORIDE [Concomitant]
  8. OCELLA [Suspect]
     Indication: CYST
     Dosage: UNK UNK, UNK
     Route: 048
     Dates: start: 20060101, end: 20080101
  9. YAZ [Suspect]
     Indication: CYST
     Dosage: UNK
     Route: 048
     Dates: start: 20060101, end: 20080101
  10. NEXIUM [Concomitant]
  11. LIDODERM [Concomitant]
  12. NABUMETONE [Concomitant]
  13. HYDROCODONE BITARTRATE AND ACETAMINOPHEN [Concomitant]

REACTIONS (2)
  - GALLBLADDER INJURY [None]
  - BILIARY DYSKINESIA [None]
